FAERS Safety Report 14914189 (Version 4)
Quarter: 2018Q4

REPORT INFORMATION
  Report Type: Spontaneous
  Country: US (occurrence: US)
  Receive Date: 20180518
  Receipt Date: 20181210
  Transmission Date: 20190204
  Serious: Yes (Disabling)
  Sender: FDA-Public Use
  Company Number: US-OTSUKA-2018_011943

PATIENT
  Sex: Female

DRUGS (5)
  1. ABILIFY [Suspect]
     Active Substance: ARIPIPRAZOLE
     Indication: MAJOR DEPRESSION
     Dosage: 5 MG, QD
     Route: 065
     Dates: start: 2012
  2. ABILIFY [Suspect]
     Active Substance: ARIPIPRAZOLE
     Indication: PSYCHOTIC DISORDER
  3. ABILIFY [Suspect]
     Active Substance: ARIPIPRAZOLE
     Indication: INSOMNIA
  4. ABILIFY [Suspect]
     Active Substance: ARIPIPRAZOLE
     Indication: ANXIETY
     Dosage: 10 MG, QD
     Route: 065
     Dates: end: 2016
  5. ABILIFY [Suspect]
     Active Substance: ARIPIPRAZOLE
     Indication: POST-TRAUMATIC STRESS DISORDER

REACTIONS (15)
  - Obsessive-compulsive disorder [Recovered/Resolved]
  - Gambling disorder [Recovered/Resolved]
  - Hypersexuality [Unknown]
  - Economic problem [Unknown]
  - Weight increased [Unknown]
  - Condition aggravated [Unknown]
  - Compulsive shopping [Recovered/Resolved]
  - Emotional distress [Unknown]
  - Pain [Unknown]
  - Disability [Unknown]
  - Injury [Unknown]
  - Eating disorder [Recovered/Resolved]
  - Product use in unapproved indication [Unknown]
  - Anhedonia [Unknown]
  - Anxiety [Unknown]

NARRATIVE: CASE EVENT DATE: 2012
